FAERS Safety Report 12978595 (Version 2)
Quarter: 2017Q4

REPORT INFORMATION
  Report Type: Report from Study
  Country: FR (occurrence: FR)
  Receive Date: 20161128
  Receipt Date: 20171127
  Transmission Date: 20180320
  Serious: Yes (Hospitalization)
  Sender: FDA-Public Use
  Company Number: FR-JNJFOC-20161120119

PATIENT
  Age: 70 Year
  Sex: Female
  Weight: 45 kg

DRUGS (18)
  1. PARACETAMOL [Concomitant]
     Active Substance: ACETAMINOPHEN
     Route: 048
     Dates: start: 20161026
  2. AMOXICILLIN. [Concomitant]
     Active Substance: AMOXICILLIN
     Route: 065
     Dates: start: 20161027
  3. FORSTEO [Concomitant]
     Active Substance: TERIPARATIDE
     Route: 065
     Dates: start: 201206, end: 201304
  4. PREDNISONE. [Concomitant]
     Active Substance: PREDNISONE
     Route: 065
     Dates: start: 20161027
  5. SPIRAMYCIN [Concomitant]
     Active Substance: SPIRAMYCIN
     Route: 065
     Dates: start: 20161103
  6. STELARA [Suspect]
     Active Substance: USTEKINUMAB
     Indication: PSORIASIS
     Route: 058
     Dates: start: 20151123, end: 20151225
  7. STELARA [Suspect]
     Active Substance: USTEKINUMAB
     Indication: PSORIASIS
     Route: 058
     Dates: start: 20151226, end: 20160917
  8. CALCIUM CARBONATE. [Concomitant]
     Active Substance: CALCIUM CARBONATE
     Route: 065
  9. SERETIDE [Concomitant]
     Active Substance: FLUTICASONE PROPIONATE\SALMETEROL XINAFOATE
     Route: 065
     Dates: start: 20161027
  10. ROCEPHINE [Concomitant]
     Active Substance: CEFTRIAXONE SODIUM
     Route: 065
     Dates: start: 20161103
  11. DEXTROMETHORPHAN [Concomitant]
     Active Substance: DEXTROMETHORPHAN
     Route: 065
     Dates: start: 20161026
  12. THYROZOL [Concomitant]
     Active Substance: METHIMAZOLE
     Route: 065
     Dates: start: 20131118
  13. UVEDOSE [Concomitant]
     Active Substance: CHOLECALCIFEROL
     Route: 065
  14. HUMIRA [Concomitant]
     Active Substance: ADALIMUMAB
     Route: 058
     Dates: start: 20161031, end: 20161031
  15. HUMIRA [Concomitant]
     Active Substance: ADALIMUMAB
     Route: 058
     Dates: start: 201611
  16. CALCITRIOL. [Concomitant]
     Active Substance: CALCITRIOL
     Route: 048
  17. FOSAVANCE [Concomitant]
     Active Substance: ALENDRONATE SODIUM\CHOLECALCIFEROL
     Route: 048
     Dates: start: 20130618
  18. ACLASTA [Concomitant]
     Active Substance: ZOLEDRONIC ACID
     Route: 065
     Dates: start: 20140116

REACTIONS (3)
  - Pulmonary mass [Recovered/Resolved]
  - Lower respiratory tract infection bacterial [Recovered/Resolved]
  - Chronic obstructive pulmonary disease [Recovered/Resolved]

NARRATIVE: CASE EVENT DATE: 20161103
